FAERS Safety Report 7525073-9 (Version None)
Quarter: 2011Q2

REPORT INFORMATION
  Report Type: 
  Country: None (occurrence: None)
  Receive Date: 20110606
  Receipt Date: 20110531
  Transmission Date: 20111010
  Serious: Yes (Hospitalization, Other)
  Sender: FDA-Public Use
  Company Number: US-AMGEN-USASP2011028264

PATIENT
  Age: 69 Year
  Sex: Female

DRUGS (2)
  1. ENBREL [Suspect]
     Indication: RHEUMATOID ARTHRITIS
     Dosage: 50 MG, QWK
     Dates: start: 20051101
  2. METHOTREXATE [Concomitant]

REACTIONS (8)
  - DIVERTICULITIS [None]
  - CHOLELITHIASIS [None]
  - POLLAKIURIA [None]
  - INJECTION SITE PAIN [None]
  - PRODUCTIVE COUGH [None]
  - DIVERTICULUM [None]
  - PAIN [None]
  - SINUSITIS [None]
